FAERS Safety Report 7367967-3 (Version None)
Quarter: 2011Q1

REPORT INFORMATION
  Report Type: 
  Country: None (occurrence: None)
  Receive Date: 20110322
  Receipt Date: 20110316
  Transmission Date: 20110831
  Serious: Yes (Death)
  Sender: FDA-Public Use
  Company Number: PHHY2011CA00975

PATIENT
  Sex: Female

DRUGS (11)
  1. CELEXA [Concomitant]
  2. ARICEPT [Concomitant]
  3. TOPAMAX [Concomitant]
  4. ASPIRIN [Concomitant]
  5. RABEPRAZOLE SODIUM [Concomitant]
  6. ATORVASTATIN CALCIUM [Concomitant]
  7. CLOZARIL [Suspect]
     Indication: BIPOLAR DISORDER
     Dosage: 300 MG, UNK
     Route: 048
     Dates: start: 20021111
  8. METOPROLOL [Concomitant]
  9. ELTROXIN [Concomitant]
  10. RAMIPRIL [Concomitant]
  11. METFORMIN [Concomitant]

REACTIONS (1)
  - AORTIC STENOSIS [None]
